FAERS Safety Report 4931632-X (Version None)
Quarter: 2006Q1

REPORT INFORMATION
  Report Type: 
  Country: None (occurrence: None)
  Receive Date: 20060303
  Receipt Date: 20051101
  Transmission Date: 20060701
  Serious: No
  Sender: FDA-Public Use
  Company Number: US-BRISTOL-MYERS SQUIBB COMPANY-13163563

PATIENT
  Age: 7 Decade
  Sex: Male

DRUGS (2)
  1. ERBITUX [Suspect]
     Indication: COLORECTAL CANCER
     Dosage: FIRST INFUSION.
     Route: 042
     Dates: start: 20051001, end: 20051001
  2. BENADRYL [Concomitant]
     Indication: PREMEDICATION
     Dates: start: 20051001, end: 20051001

REACTIONS (3)
  - ERYTHEMA [None]
  - FLUSHING [None]
  - OEDEMA PERIPHERAL [None]
